FAERS Safety Report 18136237 (Version 4)
Quarter: 2020Q4

REPORT INFORMATION
  Report Type: Spontaneous
  Country: US (occurrence: US)
  Receive Date: 20200811
  Receipt Date: 20201125
  Transmission Date: 20210113
  Serious: Yes (Other)
  Sender: FDA-Public Use
  Company Number: US-SA-2020SA204299

PATIENT

DRUGS (3)
  1. LANTUS [Suspect]
     Active Substance: INSULIN GLARGINE
     Dosage: 35 IU, QD (ONE TIME AT NIGHT)
     Route: 065
  2. LANTUS [Suspect]
     Active Substance: INSULIN GLARGINE
     Dosage: 40 IU, QD
     Route: 065
  3. LANTUS [Suspect]
     Active Substance: INSULIN GLARGINE
     Indication: TYPE 2 DIABETES MELLITUS
     Dosage: 40 IU, QD (ONE TIME AT NIGHT)
     Route: 065
     Dates: start: 2016

REACTIONS (6)
  - Weight decreased [Unknown]
  - Visual impairment [Unknown]
  - Device operational issue [Unknown]
  - Diabetes mellitus inadequate control [Unknown]
  - Product dose omission issue [Unknown]
  - Body fat disorder [Unknown]
